FAERS Safety Report 10782832 (Version 1)
Quarter: 2015Q1

REPORT INFORMATION
  Report Type: Spontaneous
  Country: US (occurrence: US)
  Receive Date: 20150210
  Receipt Date: 20150210
  Transmission Date: 20150721
  Serious: No
  Sender: FDA-Public Use
  Company Number: US-GLAXOSMITHKLINE-A1074303A

PATIENT

DRUGS (3)
  1. PHENTERMINE [Concomitant]
     Active Substance: PHENTERMINE
  2. XARELTO [Concomitant]
     Active Substance: RIVAROXABAN
  3. ALLI [Suspect]
     Active Substance: ORLISTAT
     Indication: WEIGHT DECREASED
     Dates: start: 20140317, end: 20140520

REACTIONS (4)
  - Chills [Not Recovered/Not Resolved]
  - Sinusitis [Not Recovered/Not Resolved]
  - Malaise [Not Recovered/Not Resolved]
  - Parosmia [Not Recovered/Not Resolved]

NARRATIVE: CASE EVENT DATE: 20140323
